FAERS Safety Report 6070881-7 (Version None)
Quarter: 2009Q1

REPORT INFORMATION
  Report Type: 
  Country: None (occurrence: None)
  Receive Date: 20090209
  Receipt Date: 20081107
  Transmission Date: 20090719
  Serious: No
  Sender: FDA-Public Use
  Company Number: A0755412A

PATIENT

DRUGS (1)
  1. PAXIL [Suspect]

REACTIONS (1)
  - ADVERSE EVENT [None]
